FAERS Safety Report 9395685 (Version 1)
Quarter: 2013Q3

REPORT INFORMATION
  Report Type: Spontaneous
  Country: US (occurrence: US)
  Receive Date: 20130711
  Receipt Date: 20130711
  Transmission Date: 20140515
  Serious: Yes (Hospitalization, Other)
  Sender: FDA-Public Use
  Company Number: US-BRISTOL-MYERS SQUIBB COMPANY-18787010

PATIENT
  Age: 32 Year
  Sex: Female

DRUGS (8)
  1. NULOJIX [Suspect]
     Indication: RENAL TRANSPLANT
     Route: 042
     Dates: start: 20121120
  2. CELLCEPT [Suspect]
     Indication: RENAL TRANSPLANT
     Dosage: DOSE WAS 500MG BID PRIOR TO 26APR2013
     Route: 048
     Dates: start: 20101129
  3. PREDNISONE [Concomitant]
  4. TOPROL XL [Concomitant]
  5. PRILOSEC [Concomitant]
  6. FOSAMAX [Concomitant]
  7. CALCIUM + VITAMIN D [Concomitant]
  8. MULTIVITAMIN [Concomitant]

REACTIONS (2)
  - Leukopenia [Unknown]
  - Lobar pneumonia [Unknown]
